FAERS Safety Report 8263651-2 (Version None)
Quarter: 2012Q2

REPORT INFORMATION
  Report Type: 
  Country: None (occurrence: None)
  Receive Date: 20120405
  Receipt Date: 20120326
  Transmission Date: 20120825
  Serious: Yes (Hospitalization)
  Sender: FDA-Public Use
  Company Number: FR-B.I. PHARMACEUTICALS,INC./RIDGEFIELD-2012-EU-01967GL

PATIENT
  Sex: Female

DRUGS (6)
  1. TELMISARTAN [Suspect]
     Indication: HYPERTENSION
     Dosage: 1 ANZ
     Route: 048
     Dates: start: 20000101, end: 20110927
  2. ALBUTEROL [Suspect]
     Indication: ASTHMA
     Route: 055
     Dates: start: 19500101
  3. BUDESONIDE [Suspect]
     Indication: ASTHMA
     Dosage: 400 MCG
     Route: 055
     Dates: start: 20080101
  4. SALMETEROL XINAFOATE [Suspect]
     Indication: ASTHMA
     Dosage: 2 PUF
     Route: 055
     Dates: start: 20050101
  5. VERAPAMIL HYDROCHLORIDE [Suspect]
     Indication: HYPERTENSION
     Dosage: 1 ANZ
     Route: 048
     Dates: start: 20000101, end: 20110927
  6. MONTELUKAST [Suspect]
     Indication: ASTHMA
     Dosage: 1 ANZ
     Route: 048
     Dates: start: 20050101

REACTIONS (3)
  - ECZEMA IMPETIGINOUS [None]
  - DRUG HYPERSENSITIVITY [None]
  - PHOTOSENSITIVITY REACTION [None]
